FAERS Safety Report 20732369 (Version 2)
Quarter: 2022Q2

REPORT INFORMATION
  Report Type: Spontaneous
  Country: US (occurrence: US)
  Receive Date: 20220420
  Receipt Date: 20220508
  Transmission Date: 20220721
  Serious: No
  Sender: FDA-Public Use
  Company Number: US-JNJFOC-20220418822

PATIENT
  Age: 54 Year
  Sex: Male

DRUGS (2)
  1. MENS ROGAINE EXTRA STRENGTH [Suspect]
     Active Substance: MINOXIDIL
     Indication: Alopecia
     Dosage: HALF CAPFUL
     Route: 061
     Dates: start: 201811
  2. IMIPRAMINE [Concomitant]
     Active Substance: IMIPRAMINE
     Indication: Antidepressant therapy
     Route: 065
     Dates: start: 1994

REACTIONS (3)
  - Application site discolouration [Not Recovered/Not Resolved]
  - Product residue present [Not Recovered/Not Resolved]
  - Application site dryness [Not Recovered/Not Resolved]

NARRATIVE: CASE EVENT DATE: 20210901
